FAERS Safety Report 7853660-7 (Version None)
Quarter: 2011Q4

REPORT INFORMATION
  Report Type: 
  Country: None (occurrence: None)
  Receive Date: 20111026
  Receipt Date: 20111017
  Transmission Date: 20120403
  Serious: Yes (Hospitalization)
  Sender: FDA-Public Use
  Company Number: NL-ROCHE-782651

PATIENT
  Sex: Male
  Weight: 57 kg

DRUGS (8)
  1. CISPLATIN [Suspect]
     Dosage: LAST DOSE PRIOR TO SAE: 6 MAY 2011
     Route: 042
  2. MABTHERA [Suspect]
     Indication: CHRONIC LYMPHOCYTIC LEUKAEMIA
     Dosage: LAST DOSE PRIOR TO SAE: 5 APRIL 2011
     Route: 042
  3. CISPLATIN [Suspect]
     Indication: CHRONIC LYMPHOCYTIC LEUKAEMIA
     Dosage: LAST DOSE PRIOR TO SAE: 5 APRIL 2011
     Route: 042
  4. CYTARABINE [Suspect]
     Indication: CHRONIC LYMPHOCYTIC LEUKAEMIA
     Route: 042
  5. DEXAMETHASONE [Suspect]
     Route: 048
  6. MABTHERA [Suspect]
     Dosage: LAST DOSE PRIOR TO SAE: 6 MAY 2011
     Route: 042
  7. CYTARABINE [Suspect]
     Dosage: LAST DOSE PRIOR TO SAE: 7 MAY 2011
     Route: 042
  8. DEXAMETHASONE [Suspect]
     Indication: CHRONIC LYMPHOCYTIC LEUKAEMIA
     Dosage: LAST DOSE PRIOR TO SAE: 8 APRIL 2011
     Route: 048

REACTIONS (2)
  - PNEUMONIA [None]
  - RENAL FAILURE [None]
